FAERS Safety Report 9369821 (Version 1)
Quarter: 2013Q2

REPORT INFORMATION
  Report Type: Spontaneous
  Country: US (occurrence: US)
  Receive Date: 20130626
  Receipt Date: 20130626
  Transmission Date: 20140414
  Serious: Yes (Other)
  Sender: FDA-Public Use
  Company Number: US-PFIZER INC-2013189927

PATIENT
  Age: 52 Year
  Sex: Male
  Weight: 77.1 kg

DRUGS (8)
  1. OXYCODONE HYDROCHLORIDE [Suspect]
     Indication: MYOSITIS
     Dosage: 15 MG FOUR TIMES A DAY
     Dates: start: 1999
  2. OXYCODONE HYDROCHLORIDE [Suspect]
     Indication: PAIN
  3. NORCO [Suspect]
     Indication: MYOSITIS
     Dosage: 20 MG EVERY FOUR HOURS
     Dates: start: 1999
  4. NORCO [Suspect]
     Indication: PAIN
  5. PREDNISOLONE [Concomitant]
     Indication: MYOSITIS
     Dosage: UNK
  6. METHYLPREDNISOLONE [Concomitant]
     Indication: MYOSITIS
     Dosage: UNK
  7. MAGNESIUM [Concomitant]
     Indication: MYOSITIS
     Dosage: UNK
  8. POTASSIUM [Concomitant]
     Indication: MYOSITIS
     Dosage: UNK

REACTIONS (4)
  - Snake bite [Unknown]
  - Limb injury [Unknown]
  - Weight decreased [Unknown]
  - Malaise [Recovered/Resolved]
